FAERS Safety Report 17265715 (Version 2)
Quarter: 2020Q1

REPORT INFORMATION
  Report Type: Report from Study
  Country: None (occurrence: US)
  Receive Date: 20200114
  Receipt Date: 20200301
  Transmission Date: 20200409
  Serious: Yes (Other)
  Sender: FDA-Public Use
  Company Number: US-ABBVIE-20K-163-3227498-00

PATIENT
  Age: 92 Year
  Sex: Male
  Weight: 62.2 kg

DRUGS (19)
  1. METOPROLOL SUCCINATE. [Concomitant]
     Active Substance: METOPROLOL SUCCINATE
     Indication: ATRIAL FIBRILLATION
     Dosage: METOPROLOL SUCCINATE ER  24 HOUR
     Route: 048
     Dates: start: 20190502
  2. KETOCONAZOLE. [Concomitant]
     Active Substance: KETOCONAZOLE
     Indication: SEBORRHOEIC DERMATITIS
     Dosage: EXTERNAL SHAMPOO, APPLY TO SCALP EVERY OTHER DAY FOR 05 MINUTES AND RINSE
     Route: 061
     Dates: start: 20151223
  3. DOCUSATE SODIUM. [Concomitant]
     Active Substance: DOCUSATE SODIUM
     Indication: PRODUCT USED FOR UNKNOWN INDICATION
     Dosage: TAKE 1 CAPSULE TWICE DAILY
     Route: 048
     Dates: start: 20140107
  4. LEVOTHYROXINE SODIUM. [Concomitant]
     Active Substance: LEVOTHYROXINE SODIUM
     Indication: HYPOTHYROIDISM
     Route: 048
     Dates: start: 20130906
  5. ELIQUIS [Concomitant]
     Active Substance: APIXABAN
     Indication: ATRIAL FIBRILLATION
     Route: 048
     Dates: start: 20180314
  6. LOPERAMIDE HCL [Concomitant]
     Active Substance: LOPERAMIDE HYDROCHLORIDE
     Indication: CROHN^S DISEASE
     Dosage: TAKE 01 CAPSULE TWICE DAILY PRN
     Route: 048
     Dates: start: 20190502
  7. CALCIUM ACETATE. [Concomitant]
     Active Substance: CALCIUM ACETATE
     Indication: PRODUCT USED FOR UNKNOWN INDICATION
     Route: 048
     Dates: start: 20190710
  8. GABAPENTIN. [Concomitant]
     Active Substance: GABAPENTIN
     Indication: PRODUCT USED FOR UNKNOWN INDICATION
     Dosage: TAKE 1 BY MOUTH 3 TIMES DAILY PRN NEUROPATHY PAIN
     Route: 048
     Dates: start: 20160825
  9. HUMIRA [Suspect]
     Active Substance: ADALIMUMAB
     Indication: CROHN^S DISEASE
     Route: 058
     Dates: start: 20141020
  10. TRIAMCINOLONE ACETONIDE. [Concomitant]
     Active Substance: TRIAMCINOLONE ACETONIDE
     Indication: PRODUCT USED FOR UNKNOWN INDICATION
     Dosage: 0.1 PERCENT MOUTH/THROAT PASTE, APPLY SPARINGLY TWICE A DAY
     Dates: start: 20140110
  11. MIDODRINE HCL [Concomitant]
     Active Substance: MIDODRINE HYDROCHLORIDE
     Indication: ORTHOSTATIC HYPOTENSION
     Dosage: TAKE 1 TABLET TWICE DAILY
     Route: 048
     Dates: start: 20190912
  12. FINASTERIDE. [Concomitant]
     Active Substance: FINASTERIDE
     Indication: PRODUCT USED FOR UNKNOWN INDICATION
     Route: 048
  13. KETOCONAZOLE. [Concomitant]
     Active Substance: KETOCONAZOLE
     Indication: HYPOTHYROIDISM
     Dosage: EXTERNAL CREAM, APPLY TO AFFECTED AREAS AT BEDTIME
     Route: 061
     Dates: start: 20190129
  14. VITAMIN D 2000 [Concomitant]
     Active Substance: VITAMIN D NOS
     Indication: PRODUCT USED FOR UNKNOWN INDICATION
     Route: 048
  15. NITROGLYCERIN. [Concomitant]
     Active Substance: NITROGLYCERIN
     Indication: CORONARY ARTERY DISEASE
     Dosage: NITROSTAT, TAKE 1 TAB EVERY 5 MNTS AS NEEDED FOR CHEST PAIN
     Route: 060
     Dates: start: 20140218
  16. ATORVASTATIN CALCIUM. [Concomitant]
     Active Substance: ATORVASTATIN CALCIUM
     Indication: HYPERLIPIDAEMIA
     Route: 048
     Dates: start: 20130716
  17. COLESTIPOL HCL [Concomitant]
     Active Substance: COLESTIPOL HYDROCHLORIDE
     Indication: POST PROCEDURAL DIARRHOEA
     Dosage: TAKE 1 TABLET BEDTIME
     Route: 048
     Dates: start: 20190806
  18. HUMIRA [Suspect]
     Active Substance: ADALIMUMAB
     Route: 058
     Dates: start: 20151124
  19. DIGOX [Concomitant]
     Active Substance: DIGOXIN
     Indication: ATRIAL FIBRILLATION
     Dosage: 1 PO 3X/WEEK
     Route: 048
     Dates: start: 20190103

REACTIONS (4)
  - Dental implantation [Recovering/Resolving]
  - Renal impairment [Not Recovered/Not Resolved]
  - Dental implantation [Unknown]
  - Medical device site infection [Unknown]

NARRATIVE: CASE EVENT DATE: 20200109
